FAERS Safety Report 14032188 (Version 1)
Quarter: 2017Q4

REPORT INFORMATION
  Report Type: Spontaneous
  Country: CN (occurrence: CN)
  Receive Date: 20171002
  Receipt Date: 20171002
  Transmission Date: 20180321
  Serious: Yes (Other)
  Sender: FDA-Public Use
  Company Number: CN-PFIZER INC-2017421860

PATIENT
  Age: 65 Year
  Sex: Male

DRUGS (3)
  1. PHARMORUBICIN [Suspect]
     Active Substance: EPIRUBICIN
     Indication: INTERVENTIONAL PROCEDURE
     Dosage: 30 MG, 1X/DAY
     Route: 013
     Dates: start: 20170630, end: 20170630
  2. AIHENG [Suspect]
     Active Substance: OXALIPLATIN
     Indication: INTERVENTIONAL PROCEDURE
     Dosage: 100 MG, 1X/DAY
     Route: 013
     Dates: start: 20170630, end: 20170630
  3. FLUOROURACIL. [Suspect]
     Active Substance: FLUOROURACIL
     Indication: INTERVENTIONAL PROCEDURE
     Dosage: 750 MG, 1X/DAY
     Route: 013
     Dates: start: 20170630, end: 20170630

REACTIONS (1)
  - Hepatic function abnormal [Recovering/Resolving]

NARRATIVE: CASE EVENT DATE: 20170707
